FAERS Safety Report 7589071-1 (Version None)
Quarter: 2011Q3

REPORT INFORMATION
  Report Type: 
  Country: None (occurrence: None)
  Receive Date: 20110705
  Receipt Date: 20110610
  Transmission Date: 20111222
  Serious: Yes (Hospitalization, Other)
  Sender: FDA-Public Use
  Company Number: US-BAYER-2011-024464

PATIENT
  Sex: Female
  Weight: 109 kg

DRUGS (16)
  1. DROSPIRENONE AND ETHINYL ESTRADIOL [Suspect]
     Dosage: UNK
     Dates: start: 20080101, end: 20090101
  2. TRAMADOL HCL [Concomitant]
     Indication: PAIN
     Dosage: 50 MG, TID
     Route: 048
  3. PRILOSEC [Concomitant]
  4. RANITIDINE [Concomitant]
  5. PROTONIX [Concomitant]
     Indication: GASTROOESOPHAGEAL REFLUX DISEASE
     Dosage: 40 MG, QD
  6. YASMIN [Suspect]
     Dosage: UNK
     Dates: start: 20080101, end: 20090101
  7. LEVOTHYROXINE SODIUM [Concomitant]
     Indication: HYPOTHYROIDISM
     Dosage: 0.150 MG, QD
     Route: 048
     Dates: start: 20080601
  8. PROVENTIL [Concomitant]
     Indication: ASTHMA
     Dosage: 2 PUFF(S), PRN
     Route: 055
     Dates: start: 20080601
  9. MECLIZINE [Concomitant]
     Indication: NAUSEA
     Dosage: 12.5 MG, PRN
     Route: 048
  10. CLARITIN [Concomitant]
     Indication: RHINITIS ALLERGIC
     Dosage: 1 DF, QD
  11. ADVAIR DISKUS 100/50 [Concomitant]
     Indication: ASTHMA
     Dosage: UNK UNK, BID
     Route: 055
     Dates: start: 20080601, end: 20090901
  12. ZOLOFT [Concomitant]
     Indication: ANXIETY
     Dosage: 50 MG, QD
     Route: 048
  13. YAZ [Suspect]
  14. DARVOCET [Concomitant]
     Indication: GALLBLADDER PAIN
     Dosage: UNK UNK, PRN
     Route: 048
  15. VALTREX [Concomitant]
     Indication: GENITAL HERPES
     Dosage: 1 G, QD
     Route: 048
  16. ZANTAC [Concomitant]
     Indication: ABDOMINAL PAIN UPPER
     Dosage: 150 MG, QD
     Route: 048

REACTIONS (4)
  - PAIN [None]
  - CHOLECYSTITIS CHRONIC [None]
  - GALLBLADDER DISORDER [None]
  - INJURY [None]
